FAERS Safety Report 7501777-9 (Version None)
Quarter: 2011Q2

REPORT INFORMATION
  Report Type: 
  Country: None (occurrence: None)
  Receive Date: 20110523
  Receipt Date: 20110523
  Transmission Date: 20111010
  Serious: Yes (Hospitalization)
  Sender: FDA-Public Use
  Company Number: None

PATIENT
  Age: 84 Year
  Sex: Male
  Weight: 70.4 kg

DRUGS (21)
  1. DIFLUCAN [Suspect]
     Indication: INFECTION
     Dosage: 200MG DAILY PO RECENT
     Route: 048
  2. DORZOLAMIDE [Concomitant]
  3. ASCORBIC ACID [Concomitant]
  4. GABAPENTIN [Concomitant]
  5. VOLTAREN [Concomitant]
  6. ERGOCALCIFEROL [Concomitant]
  7. ALBUTEROL SULFATE AUTOHALER [Concomitant]
  8. DULCOLAX [Concomitant]
  9. TRAVATAN [Concomitant]
  10. TOPROL-XL [Concomitant]
  11. M.V.I. [Concomitant]
  12. COMBIVANT [Concomitant]
  13. OMEPRAZOLE [Concomitant]
  14. CODEINE PHOSPHATE AND ACETAMINOPHEN [Concomitant]
  15. MIRALAX [Concomitant]
  16. AMLODIPINE [Concomitant]
  17. COLACE [Concomitant]
  18. LEVOTHYROXINE SODIUM [Concomitant]
  19. CELLUVISC [Concomitant]
  20. DIFLUCAN [Concomitant]
  21. TYLENOL-500 [Concomitant]

REACTIONS (4)
  - RENAL FAILURE ACUTE [None]
  - LACTIC ACIDOSIS [None]
  - HAEMODIALYSIS [None]
  - ACUTE HEPATIC FAILURE [None]
